FAERS Safety Report 15028002 (Version 2)
Quarter: 2024Q3

REPORT INFORMATION
  Report Type: Spontaneous
  Country: BE (occurrence: BE)
  Receive Date: 20180619
  Receipt Date: 20240905
  Transmission Date: 20241016
  Serious: Yes (Death, Other)
  Sender: ASTELLAS
  Company Number: BE-EMA-20170925-PBISHTP-152148512

PATIENT
  Age: 52 Year
  Sex: Female

DRUGS (25)
  1. AMPHOTERICIN B [Suspect]
     Active Substance: AMPHOTERICIN B
     Indication: Cutaneous leishmaniasis
     Dosage: 5 MG/KG, ONCE DAILY
     Route: 065
     Dates: start: 2009, end: 2009
  2. AMPHOTERICIN B [Suspect]
     Active Substance: AMPHOTERICIN B
     Dosage: UNK, MONTHLY
     Route: 065
     Dates: start: 2009, end: 2009
  3. AMPHOTERICIN B [Suspect]
     Active Substance: AMPHOTERICIN B
     Dosage: UNK, UNKNOWN FREQ.
     Route: 065
     Dates: start: 2010, end: 2010
  4. AMPHOTERICIN B [Suspect]
     Active Substance: AMPHOTERICIN B
     Dosage: 4 MG/KG, UNKNOWN FREQ.
     Route: 065
  5. AMPHOTERICIN B [Suspect]
     Active Substance: AMPHOTERICIN B
     Indication: Visceral leishmaniasis
     Dosage: UNK UNK, UNKNOWN FREQ.
     Route: 065
  6. AMPHOTERICIN B [Suspect]
     Active Substance: AMPHOTERICIN B
     Dosage: UNK; UNKNOWN
     Route: 065
     Dates: start: 2008
  7. ETANERCEPT [Suspect]
     Active Substance: ETANERCEPT
     Indication: Cryoglobulinaemia
     Dosage: UNK UNK, UNKNOWN FREQ.
     Route: 065
  8. ETANERCEPT [Suspect]
     Active Substance: ETANERCEPT
     Indication: Rheumatoid arthritis
  9. ETANERCEPT [Suspect]
     Active Substance: ETANERCEPT
     Indication: Vasculitis
  10. CYCLOSPORINE [Suspect]
     Active Substance: CYCLOSPORINE
     Indication: Cryoglobulinaemia
     Dosage: UNK UNK, UNKNOWN FREQ.
     Route: 065
  11. CYCLOSPORINE [Suspect]
     Active Substance: CYCLOSPORINE
     Indication: Rheumatoid arthritis
  12. CYCLOSPORINE [Suspect]
     Active Substance: CYCLOSPORINE
     Indication: Vasculitis
  13. METHYLPREDNISOLONE [Suspect]
     Active Substance: METHYLPREDNISOLONE
     Indication: Cryoglobulinaemia
     Dosage: UNK UNK, UNKNOWN FREQ.
     Route: 065
  14. METHYLPREDNISOLONE [Suspect]
     Active Substance: METHYLPREDNISOLONE
     Indication: Rheumatoid arthritis
  15. METHYLPREDNISOLONE [Suspect]
     Active Substance: METHYLPREDNISOLONE
     Indication: Vasculitis
  16. RITUXIMAB [Suspect]
     Active Substance: RITUXIMAB
     Indication: Cryoglobulinaemia
     Dosage: UNK, UNKNOWN FREQ.
     Route: 065
  17. RITUXIMAB [Suspect]
     Active Substance: RITUXIMAB
     Indication: Rheumatoid arthritis
     Route: 065
     Dates: start: 2009, end: 2010
  18. RITUXIMAB [Suspect]
     Active Substance: RITUXIMAB
     Indication: Vasculitis
  19. RITUXIMAB [Suspect]
     Active Substance: RITUXIMAB
     Indication: Immunosuppression
  20. MILTEFOSINE [Suspect]
     Active Substance: MILTEFOSINE
     Indication: Immunosuppression
     Dosage: 50 MG, UNKNOWN FREQ.
     Route: 065
  21. MILTEFOSINE [Suspect]
     Active Substance: MILTEFOSINE
     Route: 065
  22. VINCRISTINE [Suspect]
     Active Substance: VINCRISTINE
     Indication: Hodgkin^s disease
     Dosage: C-MOPP REGIMEN
     Route: 065
  23. PREDNISONE [Suspect]
     Active Substance: PREDNISONE
     Indication: Hodgkin^s disease
     Dosage: C-MOPP REGIMEN
     Route: 065
     Dates: start: 2007
  24. PROCARBAZINE [Suspect]
     Active Substance: PROCARBAZINE
     Indication: Hodgkin^s disease
     Dosage: C-MOPP REGIMEN;
     Route: 065
     Dates: start: 2007
  25. CYCLOPHOSPHAMIDE [Suspect]
     Active Substance: CYCLOPHOSPHAMIDE
     Indication: Hodgkin^s disease
     Dosage: C-MOPP REGIMEN
     Route: 065

REACTIONS (8)
  - Visceral leishmaniasis [Fatal]
  - Mucocutaneous leishmaniasis [Not Recovered/Not Resolved]
  - Mucocutaneous leishmaniasis [Unknown]
  - Infection [Unknown]
  - Drug ineffective for unapproved indication [Not Recovered/Not Resolved]
  - Pathogen resistance [Unknown]
  - Off label use [Unknown]
  - Gastrointestinal disorder [Unknown]

NARRATIVE: CASE EVENT DATE: 20080101
